FAERS Safety Report 7659439-3 (Version None)
Quarter: 2011Q3

REPORT INFORMATION
  Report Type: 
  Country: None (occurrence: None)
  Receive Date: 20110805
  Receipt Date: 20110727
  Transmission Date: 20111222
  Serious: Yes (Hospitalization)
  Sender: FDA-Public Use
  Company Number: BR-ASTRAZENECA-2011SE45130

PATIENT
  Age: 71 Year
  Sex: Female
  Weight: 75 kg

DRUGS (7)
  1. ALPRAZOLAM [Suspect]
     Indication: BIPOLAR I DISORDER
     Route: 048
  2. DEPAKOTE [Suspect]
     Indication: BIPOLAR I DISORDER
     Route: 048
  3. SEROQUEL XR [Suspect]
     Route: 048
  4. SIMVASTATIN [Concomitant]
     Route: 048
     Dates: start: 20040101
  5. ATACAND [Suspect]
     Indication: HYPERTENSION
     Route: 048
     Dates: start: 20060101
  6. SEROQUEL XR [Suspect]
     Indication: BIPOLAR I DISORDER
     Route: 048
     Dates: start: 20100601
  7. SERTRALINE HYDROCHLORIDE [Suspect]
     Indication: BIPOLAR I DISORDER
     Route: 048

REACTIONS (3)
  - ANXIETY [None]
  - BIPOLAR I DISORDER [None]
  - BLOOD AMYLASE INCREASED [None]
